FAERS Safety Report 8413817-3 (Version None)
Quarter: 2012Q2

REPORT INFORMATION
  Report Type: 
  Country: None (occurrence: None)
  Receive Date: 20120605
  Receipt Date: 20120518
  Transmission Date: 20120825
  Serious: Yes (Hospitalization)
  Sender: FDA-Public Use
  Company Number: BR-MERCK-1205BRA00088

PATIENT
  Sex: Male

DRUGS (1)
  1. COSOPT [Suspect]
     Route: 065
     Dates: start: 20120101, end: 20120518

REACTIONS (2)
  - ASTHMATIC CRISIS [None]
  - CONTRAINDICATION TO MEDICAL TREATMENT [None]
